FAERS Safety Report 7560641-X (Version None)
Quarter: 2011Q2

REPORT INFORMATION
  Report Type: 
  Country: None (occurrence: None)
  Receive Date: 20110525
  Receipt Date: 20110223
  Transmission Date: 20111010
  Serious: No
  Sender: FDA-Public Use
  Company Number: 323972

PATIENT
  Age: 52 Year
  Sex: Female

DRUGS (2)
  1. VICTOZA [Suspect]
     Indication: BLOOD TRIGLYCERIDES INCREASED
     Dosage: 1.2 MG, QD, SUBCUTANEOUS, 1.8 MG, QD, SUBCUTANEOUS
     Route: 058
  2. VICTOZA [Suspect]
     Indication: OVERWEIGHT
     Dosage: 1.2 MG, QD, SUBCUTANEOUS, 1.8 MG, QD, SUBCUTANEOUS
     Route: 058

REACTIONS (7)
  - HEADACHE [None]
  - ERUCTATION [None]
  - NAUSEA [None]
  - DIARRHOEA [None]
  - VOMITING [None]
  - CONSTIPATION [None]
  - ABDOMINAL DISTENSION [None]
